FAERS Safety Report 17671408 (Version 4)
Quarter: 2020Q4

REPORT INFORMATION
  Report Type: Spontaneous
  Country: US (occurrence: US)
  Receive Date: 20200415
  Receipt Date: 20201117
  Transmission Date: 20210113
  Serious: No
  Sender: FDA-Public Use
  Company Number: US-GLAXOSMITHKLINE-US2020AMR062876

PATIENT
  Age: 72 Year
  Sex: Female

DRUGS (5)
  1. ZEJULA [Suspect]
     Active Substance: NIRAPARIB
     Dosage: 300 MG, QD
     Dates: start: 20200224
  2. ZEJULA [Suspect]
     Active Substance: NIRAPARIB
     Dosage: 200 MG, QD
  3. ZEJULA [Suspect]
     Active Substance: NIRAPARIB
     Indication: OVARIAN CANCER
     Dosage: 200 MG, QD
     Dates: start: 20200212
  4. ZEJULA [Suspect]
     Active Substance: NIRAPARIB
     Dosage: 200 MG, QD
     Route: 048
  5. TAMOXIFEN [Suspect]
     Active Substance: TAMOXIFEN
     Indication: PRODUCT USED FOR UNKNOWN INDICATION
     Dosage: UNK

REACTIONS (14)
  - Nausea [Recovering/Resolving]
  - Faecal volume decreased [Unknown]
  - White blood cell count decreased [Unknown]
  - Computerised tomogram abnormal [Unknown]
  - Condition aggravated [Unknown]
  - Pain [Unknown]
  - Anaemia [Unknown]
  - Dizziness [Recovering/Resolving]
  - Electrocardiogram abnormal [Recovering/Resolving]
  - Dry mouth [Unknown]
  - Carbohydrate antigen 125 increased [Unknown]
  - Decreased appetite [Unknown]
  - Heart rate increased [Unknown]
  - Palpitations [Recovering/Resolving]

NARRATIVE: CASE EVENT DATE: 20200422
